FAERS Safety Report 8927469 (Version 1)
Quarter: 2012Q4

REPORT INFORMATION
  Report Type: 
  Country: CA (occurrence: CA)
  Receive Date: 20121127
  Receipt Date: 20121127
  Transmission Date: 20130627
  Serious: Yes (Hospitalization)
  Sender: FDA-Public Use
  Company Number: CA-ASTRAZENECA-2012SE86577

PATIENT
  Age: 43 Year
  Sex: Female

DRUGS (7)
  1. SEROQUEL [Suspect]
     Route: 048
  2. SEROQUEL [Suspect]
     Route: 048
  3. EPIVIR [Suspect]
     Route: 048
  4. EPIVIR [Suspect]
     Route: 048
  5. LORAZEPAM [Concomitant]
     Route: 048
  6. METHADONE [Concomitant]
     Route: 048
  7. ZOPICLONE [Concomitant]
     Route: 048

REACTIONS (2)
  - Condition aggravated [Recovered/Resolved]
  - Convulsion [Recovered/Resolved]
